FAERS Safety Report 9099742 (Version 2)
Quarter: 2013Q2

REPORT INFORMATION
  Report Type: Report from Study
  Country: US (occurrence: FR)
  Receive Date: 20130214
  Receipt Date: 20130513
  Transmission Date: 20140414
  Serious: Yes (Death, Life-Threatening, Hospitalization)
  Sender: FDA-Public Use
  Company Number: FR-ROCHE-1180400

PATIENT
  Age: 71 Year
  Sex: Male
  Weight: 101 kg

DRUGS (4)
  1. MYCOPHENOLATE MOFETIL [Suspect]
     Indication: RENAL TRANSPLANT
     Route: 048
     Dates: start: 20121203
  2. CICLOSPORIN [Suspect]
     Indication: RENAL TRANSPLANT
     Route: 048
     Dates: start: 20121203, end: 20130122
  3. PREDNISOLONE SODIUM METASULFOBENZOATE [Suspect]
     Indication: RENAL TRANSPLANT
     Route: 048
     Dates: start: 20121204, end: 20130122
  4. TACROLIMUS [Suspect]
     Indication: RENAL TRANSPLANT
     Route: 065
     Dates: start: 20130122

REACTIONS (5)
  - Septic shock [Fatal]
  - Cardiac arrest [Recovered/Resolved]
  - Renal failure acute [Not Recovered/Not Resolved]
  - Transplant rejection [Not Recovered/Not Resolved]
  - Urinary tract infection [Unknown]
